FAERS Safety Report 10400978 (Version 2)
Quarter: 2014Q3

REPORT INFORMATION
  Report Type: Report from Study
  Country: MX (occurrence: MX)
  Receive Date: 20140821
  Receipt Date: 20140821
  Transmission Date: 20150326
  Serious: Yes (Hospitalization, Other)
  Sender: FDA-Public Use
  Company Number: PHHY2014MX068256

PATIENT
  Age: 61 Year
  Sex: Female

DRUGS (3)
  1. EXFORGE HCT [Suspect]
     Active Substance: AMLODIPINE BESYLATE\HYDROCHLOROTHIAZIDE\VALSARTAN
     Dosage: 0.5 TABLET (160/5/12.5 MG), UKN
     Route: 048
  2. CONTROLIP (FENOFIBRATE) [Concomitant]
     Dosage: UKN, DAILY
  3. EXFORGE HCT [Suspect]
     Active Substance: AMLODIPINE BESYLATE\HYDROCHLOROTHIAZIDE\VALSARTAN
     Indication: HYPERTENSION
     Dosage: 1 TABLET (160/5/12.5 MG), EVERY THIRD DAY
     Route: 048

REACTIONS (4)
  - Diabetes mellitus [Not Recovered/Not Resolved]
  - Fluid retention [Recovering/Resolving]
  - Anxiety [Recovering/Resolving]
  - Wrong technique in drug usage process [Recovered/Resolved]
